FAERS Safety Report 5757410-X (Version None)
Quarter: 2008Q2

REPORT INFORMATION
  Report Type: 
  Country: None (occurrence: None)
  Receive Date: 20080603
  Receipt Date: 20080523
  Transmission Date: 20081010
  Serious: Yes (Other)
  Sender: FDA-Public Use
  Company Number: SE-SANOFI-SYNTHELABO-F01200800885

PATIENT
  Sex: Male
  Weight: 92 kg

DRUGS (14)
  1. DUROFERON [Concomitant]
     Route: 048
     Dates: start: 20070608
  2. FOLACIN [Concomitant]
     Route: 048
     Dates: start: 20070608
  3. ATACAND HCT [Concomitant]
     Route: 048
  4. AVASTIN [Suspect]
     Route: 041
     Dates: start: 20080430, end: 20080430
  5. ERBITUX [Suspect]
     Route: 041
     Dates: start: 20080507, end: 20080507
  6. CALCIUM FOLINATE [Suspect]
     Route: 041
     Dates: start: 20080430, end: 20080430
  7. FLUOROURACIL [Suspect]
     Dosage: 680 MG (400 MG/M2) IV BOLUS THEN 4200 MG (2400 MG/M2) INFUSION
     Route: 042
     Dates: start: 20080430, end: 20080501
  8. OXALIPLATIN [Suspect]
     Indication: COLORECTAL CANCER
     Route: 041
     Dates: start: 20080430, end: 20080430
  9. OXALIPLATIN [Suspect]
     Indication: METASTASES TO LIVER
     Route: 041
     Dates: start: 20080430, end: 20080430
  10. CLONAZEPAM [Concomitant]
     Route: 048
     Dates: start: 20080521
  11. BENEPAN [Concomitant]
     Route: 048
     Dates: start: 20070608
  12. TETRALYSAL [Concomitant]
     Route: 048
     Dates: start: 20080317
  13. KALCID [Concomitant]
     Route: 048
     Dates: start: 20080428
  14. ASPIRIN [Concomitant]
     Route: 048
     Dates: start: 20060915

REACTIONS (1)
  - CEREBRAL INFARCTION [None]
